FAERS Safety Report 9768650 (Version 4)
Quarter: 2014Q1

REPORT INFORMATION
  Report Type: Spontaneous
  Country: US (occurrence: US)
  Receive Date: 20131218
  Receipt Date: 20140310
  Transmission Date: 20141002
  Serious: Yes (Other)
  Sender: FDA-Public Use
  Company Number: US-BEH-2013038092

PATIENT
  Age: 66 Year
  Sex: Female

DRUGS (1)
  1. ZEMAIRA [Suspect]
     Indication: ALPHA-1 ANTI-TRYPSIN DEFICIENCY
     Dosage: AUG-2013
     Route: 042

REACTIONS (3)
  - Road traffic accident [Unknown]
  - Chills [Recovered/Resolved]
  - Asthenia [Unknown]
